FAERS Safety Report 9247311 (Version 1)
Quarter: 2013Q2

REPORT INFORMATION
  Report Type: Spontaneous
  Country: US (occurrence: US)
  Receive Date: 20130423
  Receipt Date: 20130423
  Transmission Date: 20140414
  Serious: No
  Sender: FDA-Public Use
  Company Number: US-009507513-1304USA009547

PATIENT
  Sex: Female

DRUGS (3)
  1. NASONEX [Suspect]
     Indication: SINUS CONGESTION
     Dosage: TWO SPRAYS IN EACH SIDE OF THE NOSE ONCE A DAY
     Route: 045
     Dates: start: 201104
  2. BYSTOLIC [Concomitant]
  3. OMEPRAZOLE [Concomitant]

REACTIONS (2)
  - Headache [Unknown]
  - Abdominal discomfort [Unknown]
